FAERS Safety Report 17153007 (Version 1)
Quarter: 2019Q4

REPORT INFORMATION
  Report Type: Report from Study
  Country: CN (occurrence: CN)
  Receive Date: 20191213
  Receipt Date: 20191213
  Transmission Date: 20200122
  Serious: Yes (Hospitalization)
  Sender: FDA-Public Use
  Company Number: CN-ASTRAZENECA-2019SF78557

PATIENT
  Sex: Female

DRUGS (2)
  1. BYETTA [Suspect]
     Active Substance: EXENATIDE
     Indication: DIABETES MELLITUS
     Dosage: 5.0UG UNKNOWN
     Route: 058
  2. BYETTA [Suspect]
     Active Substance: EXENATIDE
     Indication: WEIGHT ABNORMAL
     Dosage: 5.0UG UNKNOWN
     Route: 058

REACTIONS (3)
  - Hypersensitivity [Unknown]
  - Nodule [Unknown]
  - Product use in unapproved indication [Unknown]
